FAERS Safety Report 7433691-1 (Version None)
Quarter: 2011Q2

REPORT INFORMATION
  Report Type: 
  Country: None (occurrence: None)
  Receive Date: 20110422
  Receipt Date: 20110408
  Transmission Date: 20111010
  Serious: Yes (Hospitalization)
  Sender: FDA-Public Use
  Company Number: GB-CELGENEUS-167-C5013-11041067

PATIENT
  Sex: Male
  Weight: 66.4 kg

DRUGS (10)
  1. LMWH [Concomitant]
     Indication: PROPHYLAXIS
     Route: 065
  2. CYCLOPHOSPHAMIDE [Suspect]
     Indication: MULTIPLE MYELOMA
     Route: 048
     Dates: start: 20110319, end: 20110408
  3. ACICLOVIR [Concomitant]
     Route: 048
     Dates: start: 20091105
  4. FLUCONAZOLE [Concomitant]
     Route: 048
     Dates: start: 20110329
  5. DEXAMETHASONE [Suspect]
     Indication: MULTIPLE MYELOMA
     Route: 048
     Dates: start: 20110319, end: 20110408
  6. ZOPICLONE [Concomitant]
     Route: 048
  7. PARACETAMOL [Concomitant]
     Route: 048
     Dates: start: 20091105
  8. LENALIDOMIDE [Suspect]
     Indication: MULTIPLE MYELOMA
     Dosage: 15 MILLIGRAM
     Route: 048
     Dates: start: 20110319, end: 20110408
  9. GABAPENTIN [Concomitant]
     Route: 048
  10. ASPIRIN [Concomitant]
     Indication: PROPHYLAXIS
     Route: 065

REACTIONS (4)
  - HAEMOGLOBIN DECREASED [None]
  - PLEURITIC PAIN [None]
  - BACK PAIN [None]
  - PYREXIA [None]
